FAERS Safety Report 22903957 (Version 2)
Quarter: 2024Q3

REPORT INFORMATION
  Report Type: Spontaneous
  Country: AT (occurrence: AT)
  Receive Date: 20230905
  Receipt Date: 20240916
  Transmission Date: 20241017
  Serious: Yes (Hospitalization, Other)
  Sender: MACLEODS
  Company Number: None

PATIENT

DRUGS (5)
  1. ARIPIPRAZOLE [Suspect]
     Active Substance: ARIPIPRAZOLE
     Indication: Product used for unknown indication
     Dosage: 15 MILLIGRAM, QD (STOP DATE: SEP 2022)
     Route: 065
     Dates: end: 202209
  2. CARIPRAZINE [Suspect]
     Active Substance: CARIPRAZINE
     Indication: Schizoaffective disorder
     Dosage: 4.5 MILLIGRAM, QD
     Route: 065
     Dates: start: 202209
  3. CLOZAPINE [Suspect]
     Active Substance: CLOZAPINE
     Indication: Schizoaffective disorder
     Dosage: 200 MILLIGRAM, QD
     Route: 065
  4. ZOLPIDEM [Suspect]
     Active Substance: ZOLPIDEM TARTRATE
     Indication: Sleep disorder
     Dosage: 1 DOSAGE FORM, SINGLE
     Route: 048
     Dates: start: 20220920, end: 202209
  5. DOXYCYCLINE [Concomitant]
     Active Substance: DOXYCYCLINE\DOXYCYCLINE HYCLATE
     Indication: Antibiotic prophylaxis
     Dosage: 300 MILLIGRAM, QD
     Route: 065
     Dates: start: 20220902, end: 20220923

REACTIONS (2)
  - Anterograde amnesia [Recovered/Resolved]
  - Delirium [Recovered/Resolved]

NARRATIVE: CASE EVENT DATE: 20220920
